FAERS Safety Report 14491839 (Version 3)
Quarter: 2018Q1

REPORT INFORMATION
  Report Type: Report from Study
  Country: FR (occurrence: FR)
  Receive Date: 20180206
  Receipt Date: 20180321
  Transmission Date: 20180509
  Serious: Yes (Other)
  Sender: FDA-Public Use
  Company Number: FR-ROCHE-2055158

PATIENT
  Age: 76 Year
  Sex: Male
  Weight: 81 kg

DRUGS (9)
  1. ATEZOLIZUMAB. [Suspect]
     Active Substance: ATEZOLIZUMAB
     Indication: NEOPLASM
     Dosage: ON 21/DEC/2017, THE PATIENT RECEIVED THE LAST DOSE OF ATEZOLIZUMAB PRIOR TO THE EVENT.?ON 10/JAN/201
     Route: 042
     Dates: start: 20171129
  2. DAFALGAN CODEINE [Concomitant]
     Active Substance: ACETAMINOPHEN\CODEINE PHOSPHATE
     Dosage: TOTAL DAILY DOSE: 500MG/30MG
     Route: 065
     Dates: start: 20171227
  3. PRIMPERAN [Concomitant]
     Active Substance: METOCLOPRAMIDE HYDROCHLORIDE
     Route: 065
     Dates: start: 20171220
  4. SODIUM BICARBONATE. [Concomitant]
     Active Substance: SODIUM BICARBONATE
     Dosage: MOUTH WASH
     Route: 065
     Dates: start: 20171220
  5. PARACETAMOL [Concomitant]
     Active Substance: ACETAMINOPHEN
     Route: 065
     Dates: start: 20171101
  6. RO 5509554 (CSF-1R MAB) [Suspect]
     Active Substance: EMACTUZUMAB
     Indication: NEOPLASM
     Dosage: ON 21/DEC/2017, THE PATIENT RECEIVED THE LAST DOSE OF RO 5509554 (1000MG) PRIOR TO THE EVENT.?ON 10/
     Route: 042
     Dates: start: 20171129
  7. CANDESARTAN. [Concomitant]
     Active Substance: CANDESARTAN
     Route: 065
     Dates: start: 2013
  8. PANTOPRAZOLE [Concomitant]
     Active Substance: PANTOPRAZOLE
     Route: 065
     Dates: start: 2015
  9. KARDEGIC [Concomitant]
     Active Substance: ASPIRIN DL-LYSINE
     Route: 065
     Dates: start: 2005, end: 20180112

REACTIONS (1)
  - Pericarditis [Recovered/Resolved]

NARRATIVE: CASE EVENT DATE: 20180109
